FAERS Safety Report 11005322 (Version 1)
Quarter: 2015Q2

REPORT INFORMATION
  Report Type: Spontaneous
  Country: US (occurrence: US)
  Receive Date: 20150409
  Receipt Date: 20150409
  Transmission Date: 20150821
  Serious: No
  Sender: FDA-Public Use
  Company Number: US-PFIZER INC-2014164336

PATIENT
  Age: 43 Year
  Sex: Male
  Weight: 87.08 kg

DRUGS (1)
  1. GENOTROPIN [Suspect]
     Active Substance: SOMATROPIN
     Dosage: 0.4 MG, 1X/DAY
     Dates: start: 201312

REACTIONS (2)
  - Product quality issue [Unknown]
  - Injury [Unknown]

NARRATIVE: CASE EVENT DATE: 20140613
